FAERS Safety Report 18656965 (Version 1)
Quarter: 2020Q4

REPORT INFORMATION
  Report Type: Spontaneous
  Country: US (occurrence: US)
  Receive Date: 20201223
  Receipt Date: 20201223
  Transmission Date: 20210114
  Serious: No
  Sender: FDA-Public Use
  Company Number: US-ABBVIE-20K-163-3527611-00

PATIENT
  Age: 68 Year
  Sex: Male

DRUGS (5)
  1. XTANDI [Suspect]
     Active Substance: ENZALUTAMIDE
     Dosage: 40 MG X 4 CAPSULES
     Route: 048
     Dates: start: 2020, end: 2020
  2. XTANDI [Suspect]
     Active Substance: ENZALUTAMIDE
     Indication: PROSTATE CANCER
     Route: 048
     Dates: start: 20191218, end: 202002
  3. LUPRON DEPOT [Suspect]
     Active Substance: LEUPROLIDE ACETATE
     Indication: PRODUCT USED FOR UNKNOWN INDICATION
     Route: 065
  4. XTANDI [Suspect]
     Active Substance: ENZALUTAMIDE
     Route: 048
     Dates: start: 2020
  5. XTANDI [Suspect]
     Active Substance: ENZALUTAMIDE
     Route: 048
     Dates: start: 20200331, end: 2020

REACTIONS (26)
  - Productive cough [Recovering/Resolving]
  - Lymphadenopathy [Unknown]
  - Blood pressure fluctuation [Unknown]
  - Fluid retention [Unknown]
  - Gastrooesophageal reflux disease [Unknown]
  - Peau d^orange [Unknown]
  - Fatigue [Not Recovered/Not Resolved]
  - Epistaxis [Recovered/Resolved]
  - Insomnia [Unknown]
  - Arthralgia [Unknown]
  - Cough [Unknown]
  - Abdominal distension [Unknown]
  - Inappropriate schedule of product administration [Unknown]
  - Hot flush [Recovered/Resolved]
  - Eye pruritus [Recovering/Resolving]
  - Sneezing [Recovering/Resolving]
  - Gynaecomastia [Unknown]
  - Weight increased [Unknown]
  - Blood pressure increased [Unknown]
  - Neck pain [Recovered/Resolved]
  - Dizziness [Unknown]
  - Rhinorrhoea [Recovering/Resolving]
  - Rhinitis allergic [Recovered/Resolved]
  - Seasonal allergy [Unknown]
  - Pollakiuria [Not Recovered/Not Resolved]
  - Pain in extremity [Unknown]

NARRATIVE: CASE EVENT DATE: 2019
